FAERS Safety Report 9034588 (Version 1)
Quarter: 2013Q1

REPORT INFORMATION
  Report Type: Spontaneous
  Country: US (occurrence: None)
  Receive Date: 20130116
  Receipt Date: 20130116
  Transmission Date: 20140127
  Serious: No
  Sender: FDA-Public Use
  Company Number: None

PATIENT
  Age: 63 Year
  Sex: Female

DRUGS (1)
  1. AUGMENTIN [Suspect]
     Dates: start: 20110817, end: 20110826

REACTIONS (1)
  - Drug-induced liver injury [None]
